FAERS Safety Report 16871122 (Version 1)
Quarter: 2019Q3

REPORT INFORMATION
  Report Type: Report from Study
  Country: None (occurrence: DE)
  Receive Date: 20190930
  Receipt Date: 20190930
  Transmission Date: 20191005
  Serious: Yes (Death)
  Sender: FDA-Public Use
  Company Number: DE-ABBVIE-19K-062-2945304-00

PATIENT
  Sex: Male

DRUGS (9)
  1. MADOPAR DEPOT [Concomitant]
     Active Substance: BENSERAZIDE HYDROCHLORIDE\LEVODOPA
     Indication: PRODUCT USED FOR UNKNOWN INDICATION
     Dosage: AT NIGHT
  2. BICALUT [Concomitant]
     Active Substance: BICALUTAMIDE
     Indication: PRODUCT USED FOR UNKNOWN INDICATION
  3. SCOPODERM [Concomitant]
     Active Substance: SCOPOLAMINE
     Indication: PRODUCT USED FOR UNKNOWN INDICATION
  4. RIVOTRIL [Concomitant]
     Active Substance: CLONAZEPAM
     Indication: PRODUCT USED FOR UNKNOWN INDICATION
  5. HCT [Concomitant]
     Active Substance: HYDROCHLOROTHIAZIDE
     Indication: PRODUCT USED FOR UNKNOWN INDICATION
  6. FOLIC ACID. [Concomitant]
     Active Substance: FOLIC ACID
     Indication: PRODUCT USED FOR UNKNOWN INDICATION
  7. ATORVASTATIN [Concomitant]
     Active Substance: ATORVASTATIN
     Indication: PRODUCT USED FOR UNKNOWN INDICATION
  8. DOXAZOSIN [Concomitant]
     Active Substance: DOXAZOSIN MESYLATE
     Indication: PRODUCT USED FOR UNKNOWN INDICATION
  9. DUODOPA [Suspect]
     Active Substance: CARBIDOPA\LEVODOPA
     Indication: PARKINSON^S DISEASE
     Dosage: MD 12.0ML CRD 4.7ML/H ED 3.0 ML
     Route: 050
     Dates: start: 20170105

REACTIONS (1)
  - Death [Fatal]
